FAERS Safety Report 21903577 (Version 1)
Quarter: 2023Q1

REPORT INFORMATION
  Report Type: Spontaneous
  Country: TW (occurrence: TW)
  Receive Date: 20230124
  Receipt Date: 20230124
  Transmission Date: 20230418
  Serious: Yes (Hospitalization)
  Sender: FDA-Public Use
  Company Number: TW-MYLANLABS-2023M1007869

PATIENT
  Age: 52 Year
  Sex: Female

DRUGS (6)
  1. CARBOPLATIN [Suspect]
     Active Substance: CARBOPLATIN
     Indication: Clear cell endometrial carcinoma
     Dosage: UNK UNK, CYCLE (RECEIVED 6 CYCLES TRI-WEEKLY)
     Route: 065
     Dates: start: 201703, end: 201706
  2. CARBOPLATIN [Suspect]
     Active Substance: CARBOPLATIN
     Dosage: 10 MILLIGRAM/KILOGRAM, Q3W, TRI-WEEKLY
     Route: 065
  3. DOXORUBICIN [Suspect]
     Active Substance: DOXORUBICIN
     Indication: Clear cell endometrial carcinoma
     Dosage: 1 MILLIGRAM/KILOGRAM, Q3W
     Route: 065
  4. PEMBROLIZUMAB [Suspect]
     Active Substance: PEMBROLIZUMAB
     Indication: Clear cell endometrial carcinoma
     Dosage: 100 MILLIGRAM, CYCLE
     Route: 065
     Dates: start: 201709
  5. PEMBROLIZUMAB [Suspect]
     Active Substance: PEMBROLIZUMAB
     Dosage: UNK, Q3W , A COMBINATION THERAPY WITH TRI-WEEKLY PEMBROLIZUMAB
     Route: 065
  6. PACLITAXEL [Concomitant]
     Active Substance: PACLITAXEL
     Indication: Clear cell endometrial carcinoma
     Dosage: UNK, CYCLE, 6 CYCLES TRI-WEEKLY
     Route: 065
     Dates: start: 201703, end: 201706

REACTIONS (6)
  - Neutropenia [Unknown]
  - Nausea [Unknown]
  - Vomiting [Unknown]
  - Sensory disturbance [Unknown]
  - Dermatitis [Unknown]
  - Enteritis [Unknown]
